FAERS Safety Report 11962376 (Version 1)
Quarter: 2016Q1

REPORT INFORMATION
  Report Type: Spontaneous
  Country: NO (occurrence: NO)
  Receive Date: 20160126
  Receipt Date: 20160126
  Transmission Date: 20160526
  Serious: Yes (Other)
  Sender: FDA-Public Use
  Company Number: NO-ACTAVIS-2016-00913

PATIENT
  Age: 63 Year
  Sex: Male

DRUGS (2)
  1. GABAPENTIN (UNKNOWN) [Suspect]
     Active Substance: GABAPENTIN
     Indication: NEURALGIA
     Dosage: 600 MG, TID
     Route: 065
  2. OXALIPLATIN (UNKNOWN) [Suspect]
     Active Substance: OXALIPLATIN
     Indication: COLON CANCER STAGE III
     Dosage: UNK
     Route: 065

REACTIONS (2)
  - Sedation [Unknown]
  - Neuropathy peripheral [Recovering/Resolving]
